FAERS Safety Report 25257693 (Version 1)
Quarter: 2025Q2

REPORT INFORMATION
  Report Type: Spontaneous
  Country: KR (occurrence: KR)
  Receive Date: 20250430
  Receipt Date: 20250430
  Transmission Date: 20250717
  Serious: Yes (Death, Life-Threatening)
  Sender: MALLINCKRODT
  Company Number: KR-MALLINCKRODT-MNK202502524

PATIENT
  Age: 2 Day
  Sex: Male

DRUGS (2)
  1. NITRIC OXIDE [Suspect]
     Active Substance: NITRIC OXIDE
     Indication: Newborn persistent pulmonary hypertension
     Route: 055
     Dates: start: 20250416, end: 202504
  2. NITRIC OXIDE [Suspect]
     Active Substance: NITRIC OXIDE
     Route: 055
     Dates: start: 202504, end: 20250420

REACTIONS (5)
  - Newborn persistent pulmonary hypertension [Fatal]
  - Condition aggravated [Fatal]
  - Low birth weight baby [Fatal]
  - Neonatal respiratory distress syndrome [Not Recovered/Not Resolved]
  - Product use issue [Unknown]

NARRATIVE: CASE EVENT DATE: 20250414
